FAERS Safety Report 9332016 (Version 2)
Quarter: 2013Q4

REPORT INFORMATION
  Report Type: Spontaneous
  Country: US (occurrence: US)
  Receive Date: 20130605
  Receipt Date: 20131008
  Transmission Date: 20140711
  Serious: Yes (Death, Hospitalization)
  Sender: FDA-Public Use
  Company Number: US-B.I. PHARMACEUTICALS,INC./RIDGEFIELD-2013-BI-15774BP

PATIENT
  Age: 72 Year
  Sex: Female
  Weight: 63.5 kg

DRUGS (11)
  1. PRADAXA [Suspect]
     Indication: ATRIAL FIBRILLATION
     Dosage: 300 MG
     Route: 048
     Dates: start: 20110104, end: 20120129
  2. ADVAIR [Concomitant]
  3. TOPROL XL [Concomitant]
     Dosage: 25 MG
  4. LASIX [Concomitant]
     Dosage: 20 MG
  5. AVAPRO [Concomitant]
     Dosage: 300 MG
  6. SINGULAIR [Concomitant]
     Dosage: 10 MG
  7. METOPROLOL [Concomitant]
     Dosage: 100 MG
  8. ALPRAZOLAM [Concomitant]
     Dosage: 0.25 MG
  9. HYDROCHLOROTHIAZIDE [Concomitant]
     Dosage: 25 MG
  10. POTASSIUM CHLORIDE [Concomitant]
     Dosage: 20 MEQ
  11. SYNTHROID [Concomitant]
     Dosage: 100 MCG

REACTIONS (2)
  - Haemorrhage intracranial [Fatal]
  - Cerebral haematoma [Fatal]
